FAERS Safety Report 26216885 (Version 1)
Quarter: 2025Q4

REPORT INFORMATION
  Report Type: Spontaneous
  Country: CN (occurrence: CN)
  Receive Date: 20251231
  Receipt Date: 20251231
  Transmission Date: 20260117
  Serious: No
  Sender: BLUEPRINT MEDICINES
  Company Number: CN-CSTONE PHARMACEUTICALS (SUZHOU) CO., LTD.-2025CN00998

PATIENT
  Age: 22 Year
  Sex: Female

DRUGS (6)
  1. AYVAKIT [Suspect]
     Active Substance: AVAPRITINIB
     Indication: Acute myeloid leukaemia refractory
     Dosage: 100 MILLIGRAM, UNKNOWN
     Route: 065
     Dates: start: 20240821, end: 20240903
  2. AYVAKIT [Suspect]
     Active Substance: AVAPRITINIB
     Dosage: 100 MILLIGRAM, UNKNOWN
     Route: 065
     Dates: start: 20241202
  3. AZACITIDINE [Concomitant]
     Active Substance: AZACITIDINE
     Indication: Acute myeloid leukaemia refractory
     Dosage: UNK UNK, UNKNOWN
     Route: 065
     Dates: start: 20241202
  4. MITOXANTRONE [Concomitant]
     Active Substance: MITOXANTRONE HYDROCHLORIDE
     Indication: Acute myeloid leukaemia refractory
     Dosage: 6 MILLIGRAM/SQ. METER, UNKNOWN
     Route: 065
     Dates: start: 20240821, end: 20240823
  5. CYTARABINE [Concomitant]
     Active Substance: CYTARABINE
     Indication: Acute myeloid leukaemia refractory
     Dosage: 100 MILLIGRAM/SQ. METER, UNKNOWN
     Route: 065
     Dates: start: 20240821, end: 20240827
  6. ETOPOSIDE [Concomitant]
     Active Substance: ETOPOSIDE
     Indication: Acute myeloid leukaemia refractory
     Dosage: 100 MILLIGRAM/SQ. METER, UNKNOWN
     Route: 065
     Dates: start: 20240821, end: 20240823

REACTIONS (1)
  - Off label use [Unknown]

NARRATIVE: CASE EVENT DATE: 20240821
